FAERS Safety Report 4366775-5 (Version None)
Quarter: 2004Q2

REPORT INFORMATION
  Report Type: 
  Country: None (occurrence: None)
  Receive Date: 20040528
  Receipt Date: 20040521
  Transmission Date: 20050107
  Serious: Yes (Other)
  Sender: FDA-Public Use
  Company Number: PHEH2004US05665

PATIENT
  Age: 42 Year
  Sex: Male
  Weight: 91 kg

DRUGS (1)
  1. LAMISIL [Suspect]
     Indication: NAIL TINEA
     Dosage: UNK, QD
     Route: 048
     Dates: start: 20031101, end: 20040301

REACTIONS (4)
  - BLOOD GLUCOSE INCREASED [None]
  - CHROMATURIA [None]
  - VISION BLURRED [None]
  - WEIGHT DECREASED [None]
